FAERS Safety Report 9420564 (Version 1)
Quarter: 2013Q3

REPORT INFORMATION
  Report Type: Spontaneous
  Country: US (occurrence: US)
  Receive Date: 20130725
  Receipt Date: 20130725
  Transmission Date: 20140515
  Serious: Yes (Other)
  Sender: FDA-Public Use
  Company Number: US-ABBOTT-13P-163-1103994-00

PATIENT
  Age: 57 Year
  Sex: Female

DRUGS (1)
  1. SYNTHROID [Suspect]
     Indication: PRODUCT USED FOR UNKNOWN INDICATION

REACTIONS (11)
  - Myocardial infarction [Recovered/Resolved]
  - Chest discomfort [Recovered/Resolved]
  - Palpitations [Recovered/Resolved]
  - Depression [Recovered/Resolved]
  - Anxiety [Recovered/Resolved]
  - Anger [Recovered/Resolved]
  - Emotional disorder [Recovered/Resolved]
  - Crying [Recovered/Resolved]
  - Feeling abnormal [Unknown]
  - Mental disorder [Recovered/Resolved]
  - Lethargy [Recovered/Resolved]
